FAERS Safety Report 4695476-9 (Version None)
Quarter: 2005Q2

REPORT INFORMATION
  Report Type: 
  Country: None (occurrence: None)
  Receive Date: 20050620
  Receipt Date: 20050620
  Transmission Date: 20051028
  Serious: Yes (Hospitalization)
  Sender: FDA-Public Use
  Company Number: None

PATIENT
  Age: 58 Year
  Sex: Male
  Weight: 87.5442 kg

DRUGS (1)
  1. MORPHINE [Suspect]
     Indication: POSTOPERATIVE ANALGESIA
     Dosage: 1MG/ML    PCA   INTRAVENOU
     Route: 042
     Dates: start: 20050607, end: 20050609

REACTIONS (2)
  - POST PROCEDURAL COMPLICATION [None]
  - SOMNOLENCE [None]
